FAERS Safety Report 6879195-6 (Version None)
Quarter: 2010Q3

REPORT INFORMATION
  Report Type: 
  Country: None (occurrence: None)
  Receive Date: 20100728
  Receipt Date: 20100726
  Transmission Date: 20110219
  Serious: No
  Sender: FDA-Public Use
  Company Number: US-CEPHALON-2010003928

PATIENT
  Sex: Female

DRUGS (2)
  1. FENTORA [Suspect]
     Indication: CYSTIC FIBROSIS
     Route: 002
     Dates: start: 20100726
  2. FENTORA [Suspect]
     Indication: PANCREATITIS

REACTIONS (1)
  - CIRCUMSTANCE OR INFORMATION CAPABLE OF LEADING TO MEDICATION ERROR [None]
